FAERS Safety Report 15456838 (Version 1)
Quarter: 2018Q3

REPORT INFORMATION
  Report Type: Spontaneous
  Country: US (occurrence: US)
  Receive Date: 20180928
  Receipt Date: 20180928
  Transmission Date: 20181010
  Serious: Yes (Death)
  Sender: FDA-Public Use
  Company Number: None

PATIENT
  Age: 54 Year
  Sex: Male
  Weight: 83.79 kg

DRUGS (19)
  1. AUGMENTIN [Concomitant]
     Active Substance: AMOXICILLIN\CLAVULANATE POTASSIUM
  2. MIRTAZAPINE. [Concomitant]
     Active Substance: MIRTAZAPINE
  3. MULTIVITAMINS [Concomitant]
     Active Substance: VITAMINS
  4. NOXAFIL [Concomitant]
     Active Substance: POSACONAZOLE
  5. PROCHLORPERAZINE. [Concomitant]
     Active Substance: PROCHLORPERAZINE
  6. BACTRIM DS [Concomitant]
     Active Substance: SULFAMETHOXAZOLE\TRIMETHOPRIM
  7. MEDROL [Concomitant]
     Active Substance: METHYLPREDNISOLONE
  8. PANTOPRAZOLE [Concomitant]
     Active Substance: PANTOPRAZOLE
  9. SIROLIMUS. [Suspect]
     Active Substance: SIROLIMUS
     Indication: GRAFT VERSUS HOST DISEASE
     Route: 048
     Dates: start: 20180108
  10. ADVAIR DISKUS [Concomitant]
     Active Substance: FLUTICASONE PROPIONATE\SALMETEROL XINAFOATE
  11. ALLOPURINOL. [Concomitant]
     Active Substance: ALLOPURINOL
  12. KETOCONAZOLE. [Concomitant]
     Active Substance: KETOCONAZOLE
  13. ACYCLOVIR. [Concomitant]
     Active Substance: ACYCLOVIR
  14. FOLIC ACID. [Concomitant]
     Active Substance: FOLIC ACID
  15. NORCO [Concomitant]
     Active Substance: ACETAMINOPHEN\HYDROCODONE BITARTRATE
  16. TRAMADOL. [Concomitant]
     Active Substance: TRAMADOL
  17. BUDESONIDE. [Concomitant]
     Active Substance: BUDESONIDE
  18. HYDROCORTISONE. [Concomitant]
     Active Substance: HYDROCORTISONE
  19. PSYLLIUM [Concomitant]
     Active Substance: PLANTAGO SEED

REACTIONS (1)
  - Disease progression [None]
